FAERS Safety Report 8305916-1 (Version None)
Quarter: 2012Q2

REPORT INFORMATION
  Report Type: 
  Country: None (occurrence: None)
  Receive Date: 20120423
  Receipt Date: 20110324
  Transmission Date: 20120825
  Serious: No
  Sender: FDA-Public Use
  Company Number: US-BAUSCH-2011BL001953

PATIENT
  Sex: Female

DRUGS (3)
  1. AZOPT [Concomitant]
     Indication: GLAUCOMA
     Route: 047
  2. LUMAGAN [Concomitant]
     Indication: GLAUCOMA
     Route: 047
  3. LEVOBUNOLOL HYDROCHLORIDE [Suspect]
     Indication: GLAUCOMA
     Route: 047
     Dates: start: 20110320

REACTIONS (3)
  - DIARRHOEA [None]
  - ABDOMINAL PAIN [None]
  - FREQUENT BOWEL MOVEMENTS [None]
